FAERS Safety Report 9675101 (Version 3)
Quarter: 2013Q4

REPORT INFORMATION
  Report Type: Spontaneous
  Country: JP (occurrence: JP)
  Receive Date: 20131107
  Receipt Date: 20131125
  Transmission Date: 20140711
  Serious: Yes (Other)
  Sender: FDA-Public Use
  Company Number: JP-PFIZER INC-2013233241

PATIENT
  Sex: Female

DRUGS (2)
  1. NORVASC OD [Suspect]
     Indication: HYPERTENSION
     Dosage: UNK
     Route: 048
  2. PLETAL [Concomitant]
     Dosage: UNK

REACTIONS (2)
  - Coronary artery disease [Unknown]
  - Leukopenia [Recovered/Resolved]
